FAERS Safety Report 22931584 (Version 3)
Quarter: 2023Q4

REPORT INFORMATION
  Report Type: Report from Study
  Country: FR (occurrence: None)
  Receive Date: 20230911
  Receipt Date: 20231002
  Transmission Date: 20240109
  Serious: Yes (Hospitalization)
  Sender: FDA-Public Use
  Company Number: FR-Eisai Medical Research-EC-2023-148388

PATIENT
  Age: 58 Year
  Sex: Male
  Weight: 74 kg

DRUGS (13)
  1. LENVATINIB [Suspect]
     Active Substance: LENVATINIB
     Indication: Renal cell carcinoma
     Dosage: STARTING AT 20 MG, FLUCTUATED DOSAGE
     Route: 048
     Dates: start: 20211026, end: 20230821
  2. PEMBROLIZUMAB [Suspect]
     Active Substance: PEMBROLIZUMAB
     Indication: Renal cell carcinoma
     Route: 042
     Dates: start: 20211026, end: 20230821
  3. PRAVASTATIN [Concomitant]
     Active Substance: PRAVASTATIN
     Dates: start: 20100101
  4. GLICLAZIDE [Concomitant]
     Active Substance: GLICLAZIDE
     Dates: start: 20150101
  5. METFORMIN [Concomitant]
     Active Substance: METFORMIN HYDROCHLORIDE
     Dates: start: 20150101
  6. OZEMPIC [Concomitant]
     Active Substance: SEMAGLUTIDE
     Dates: start: 20200101
  7. AVODART [Concomitant]
     Active Substance: DUTASTERIDE
     Dates: start: 20210801
  8. ALFUZOSIN [Concomitant]
     Active Substance: ALFUZOSIN
     Dates: start: 202101
  9. IMODIUM [Concomitant]
     Active Substance: LOPERAMIDE HYDROCHLORIDE
     Dates: start: 20211117
  10. MELATONIN [Concomitant]
     Active Substance: MELATONIN
     Dates: start: 20211227
  11. DIPROSONE [Concomitant]
     Active Substance: BETAMETHASONE DIPROPIONATE
     Dates: start: 20220117
  12. ACETAMINOPHEN [Concomitant]
     Active Substance: ACETAMINOPHEN
     Dates: start: 20220208
  13. LEVOTHYROXINE [Concomitant]
     Active Substance: LEVOTHYROXINE
     Dates: start: 20220301

REACTIONS (1)
  - Dermatitis bullous [Recovered/Resolved]

NARRATIVE: CASE EVENT DATE: 20230903
